FAERS Safety Report 9422504 (Version 1)
Quarter: 2013Q3

REPORT INFORMATION
  Report Type: Report from Study
  Country: LB (occurrence: LB)
  Receive Date: 20130726
  Receipt Date: 20130726
  Transmission Date: 20140515
  Serious: Yes (Hospitalization)
  Sender: FDA-Public Use
  Company Number: LB-SANOFI-AVENTIS-2013SA073485

PATIENT
  Age: 60 Year
  Sex: Male

DRUGS (13)
  1. LANTUS SOLOSTAR [Suspect]
     Indication: PRODUCT USED FOR UNKNOWN INDICATION
     Dosage: DOSE:30 UNIT(S)
     Route: 058
     Dates: start: 201307
  2. SOLOSTAR [Suspect]
     Indication: DEVICE THERAPY
     Dates: start: 201307
  3. TOLPERISONE HYDROCHLORIDE [Concomitant]
     Route: 048
  4. PRAXILENE [Concomitant]
     Route: 048
  5. LYRICA [Concomitant]
     Route: 048
  6. CRESTOR [Concomitant]
     Route: 048
  7. APROVEL [Concomitant]
     Route: 048
  8. BISOPROLOL [Concomitant]
     Route: 048
  9. NEFAZAN [Concomitant]
     Route: 048
  10. CORVASAL [Concomitant]
     Route: 048
  11. TRITACE [Concomitant]
     Route: 048
  12. ZOCOR [Concomitant]
     Route: 048
  13. ASPICOT [Concomitant]
     Route: 048

REACTIONS (2)
  - Vertigo [Not Recovered/Not Resolved]
  - Hyperhidrosis [Not Recovered/Not Resolved]
